FAERS Safety Report 6856800-1 (Version None)
Quarter: 2010Q3

REPORT INFORMATION
  Report Type: 
  Country: None (occurrence: None)
  Receive Date: 20100719
  Receipt Date: 20100709
  Transmission Date: 20110219
  Serious: Yes (Hospitalization)
  Sender: FDA-Public Use
  Company Number: US-JNJCH-2010015148

PATIENT
  Sex: Female

DRUGS (2)
  1. ROLAIDS [Suspect]
     Indication: DYSPEPSIA
     Dosage: TEXT:TWO TABLETS AS RECOMMENDED
     Route: 048
     Dates: start: 20080801, end: 20100501
  2. NEXIUM [Concomitant]
     Indication: DYSPEPSIA
     Dosage: TEXT:UNKNOWN
     Route: 065

REACTIONS (3)
  - BILE DUCT STONE [None]
  - DRUG INEFFECTIVE [None]
  - PRODUCT ODOUR ABNORMAL [None]
